FAERS Safety Report 8993037 (Version 8)
Quarter: 2013Q4

REPORT INFORMATION
  Report Type: Report from Study
  Country: JP (occurrence: JP)
  Receive Date: 20130102
  Receipt Date: 20131213
  Transmission Date: 20140711
  Serious: Yes (Death, Hospitalization, Other)
  Sender: FDA-Public Use
  Company Number: JP-JNJFOC-20121212249

PATIENT
  Age: 80 Year
  Sex: Male

DRUGS (21)
  1. STELARA [Suspect]
     Indication: PSORIASIS
     Route: 058
     Dates: start: 20121002, end: 20121002
  2. STELARA [Suspect]
     Indication: PSORIASIS
     Route: 058
     Dates: start: 20120710, end: 20120710
  3. STELARA [Suspect]
     Indication: PSORIASIS
     Route: 058
     Dates: start: 20120515, end: 20120515
  4. STELARA [Suspect]
     Indication: PSORIASIS
     Route: 058
     Dates: start: 20120417, end: 20120417
  5. STELARA [Suspect]
     Indication: PSORIASIS
     Route: 058
     Dates: start: 20120410, end: 2012
  6. CICLOSPORIN [Concomitant]
     Indication: PSORIASIS
     Dosage: 100-150 MG
     Route: 048
     Dates: start: 20120417, end: 20120515
  7. CICLOSPORIN [Concomitant]
     Indication: PSORIASIS
     Dosage: 100-150 MG
     Route: 048
     Dates: start: 20120516, end: 20120710
  8. PARIET [Concomitant]
     Indication: PROPHYLAXIS
     Route: 048
     Dates: start: 2009
  9. PLAVIX [Concomitant]
     Indication: MYOCARDIAL INFARCTION
     Route: 048
     Dates: start: 2009
  10. ISCOTIN [Concomitant]
     Indication: PROPHYLAXIS
     Route: 048
     Dates: start: 20120417, end: 20121225
  11. ISCOTIN [Concomitant]
     Indication: TUBERCULOSIS
     Route: 048
     Dates: start: 20120417, end: 20121225
  12. HERBESSER [Concomitant]
     Indication: ANGINA PECTORIS
     Route: 048
     Dates: start: 2009
  13. ADALAT [Concomitant]
     Indication: HYPERTENSION
     Route: 048
     Dates: start: 2009
  14. NITROGLYCERIN [Concomitant]
     Indication: ANGINA PECTORIS
     Route: 062
     Dates: start: 2009
  15. ALLELOCK [Concomitant]
     Indication: HYPERTENSION
     Route: 048
     Dates: end: 20120912
  16. MYSER [Concomitant]
     Indication: PSORIASIS
     Route: 061
  17. DRENISON [Concomitant]
     Indication: PSORIASIS
     Dosage: 2-3 CM
     Route: 062
  18. DRENISON [Concomitant]
     Indication: PSORIASIS
     Dosage: 3-5 CM
     Route: 062
  19. BONALFA [Concomitant]
     Indication: PSORIASIS
     Route: 061
  20. NEORAL [Concomitant]
     Indication: HYPERTENSION
     Route: 048
     Dates: start: 20120516, end: 20120710
  21. NEORAL [Concomitant]
     Indication: HYPERTENSION
     Route: 048
     Dates: end: 20120515

REACTIONS (3)
  - Interstitial lung disease [Fatal]
  - Vasculitis [Unknown]
  - Collagen disorder [Unknown]
